FAERS Safety Report 18253867 (Version 1)
Quarter: 2020Q3

REPORT INFORMATION
  Report Type: Report from Study
  Country: CA (occurrence: CA)
  Receive Date: 20200910
  Receipt Date: 20200910
  Transmission Date: 20201103
  Serious: Yes (Other)
  Sender: FDA-Public Use
  Company Number: CA-JNJFOC-20191206689

PATIENT
  Age: 15 Year
  Sex: Male
  Weight: 54.9 kg

DRUGS (1)
  1. REMICADE [Suspect]
     Active Substance: INFLIXIMAB
     Indication: CROHN^S DISEASE
     Dosage: ON 03/DEC/2019, THE PATIENT WAS GIVEN 23RD INFUSION WITH A DOSE OF 300 MG.
     Route: 042
     Dates: start: 20170322

REACTIONS (5)
  - Hand fracture [Recovered/Resolved]
  - Abdominal pain [Unknown]
  - Diarrhoea [Unknown]
  - Therapeutic product effect decreased [Unknown]
  - General physical health deterioration [Unknown]

NARRATIVE: CASE EVENT DATE: 20191202
